FAERS Safety Report 23475446 (Version 1)
Quarter: 2024Q1

REPORT INFORMATION
  Report Type: Report from Study
  Country: US (occurrence: US)
  Receive Date: 20240204
  Receipt Date: 20240204
  Transmission Date: 20240410
  Serious: No
  Sender: FDA-Public Use
  Company Number: US-EXELIXIS-CABO-23059539

PATIENT
  Sex: Male
  Weight: 72.562 kg

DRUGS (12)
  1. CABOMETYX [Suspect]
     Active Substance: CABOZANTINIB S-MALATE
     Indication: Dermatomyositis
     Dosage: 20 MG, QD
     Route: 048
  2. BUDESONIDE [Concomitant]
     Active Substance: BUDESONIDE
  3. SODIUM CHLORIDE [Concomitant]
     Active Substance: SODIUM CHLORIDE
  4. EPINEPHRINE [Concomitant]
     Active Substance: EPINEPHRINE
  5. HEPARIN [Concomitant]
     Active Substance: HEPARIN SODIUM
  6. LIDOCAINE [Concomitant]
     Active Substance: LIDOCAINE
  7. ACETAMINOPHEN [Concomitant]
     Active Substance: ACETAMINOPHEN
  8. SODIUM CHLORIDE [Concomitant]
     Active Substance: SODIUM CHLORIDE
  9. DIPHENHYDRAMINE [Concomitant]
     Active Substance: DIPHENHYDRAMINE
  10. GAMUNEX [Concomitant]
     Active Substance: HUMAN IMMUNOGLOBULIN G
  11. BUSPIRONE HCL [Concomitant]
     Active Substance: BUSPIRONE HYDROCHLORIDE
  12. OPDIVO [Concomitant]
     Active Substance: NIVOLUMAB

REACTIONS (3)
  - Nerve compression [Recovering/Resolving]
  - Neck injury [Recovering/Resolving]
  - Off label use [Unknown]
